FAERS Safety Report 7984251-5 (Version None)
Quarter: 2011Q4

REPORT INFORMATION
  Report Type: 
  Country: None (occurrence: None)
  Receive Date: 20111214
  Receipt Date: 20111129
  Transmission Date: 20120403
  Serious: Yes (Death)
  Sender: FDA-Public Use
  Company Number: 1000026100

PATIENT
  Age: 83 Year
  Sex: Male
  Weight: 78.9 kg

DRUGS (3)
  1. SPIRIVA (TIOTROPIUM BROMIDE)(TIOTROPIUM BROMIDE) [Concomitant]
  2. ROFLUMILAST (ROFLUMILAST) (TABLETS) [Suspect]
     Indication: CHRONIC OBSTRUCTIVE PULMONARY DISEASE
     Dosage: 500 MCG (500 MCG,1 IN 1 D)
     Dates: start: 20110517, end: 20111101
  3. ADVAIR (SALMETEROL, FLUTICASONE)(SALMETEROL, FLUTICASONE) [Concomitant]

REACTIONS (1)
  - DEATH [None]
